FAERS Safety Report 7915324-0 (Version None)
Quarter: 2011Q4

REPORT INFORMATION
  Report Type: 
  Country: None (occurrence: None)
  Receive Date: 20111115
  Receipt Date: 20111107
  Transmission Date: 20120403
  Serious: Yes (Other)
  Sender: FDA-Public Use
  Company Number: PHHY2011US05139

PATIENT
  Sex: Female

DRUGS (2)
  1. FAMPRIDINE [Suspect]
     Dosage: UNK UKN, UNK
  2. GILENYA [Suspect]
     Indication: MULTIPLE SCLEROSIS
     Dosage: 0.5 MG, QD
     Route: 048
     Dates: start: 20110114

REACTIONS (3)
  - URINARY TRACT INFECTION [None]
  - NAUSEA [None]
  - INSOMNIA [None]
